FAERS Safety Report 10488516 (Version 1)
Quarter: 2014Q3

REPORT INFORMATION
  Report Type: Spontaneous
  Country: US (occurrence: None)
  Receive Date: 20140917
  Receipt Date: 20140917
  Transmission Date: 20150326
  Serious: No
  Sender: FDA-Public Use
  Company Number: US-145587

PATIENT
  Age: 44 Year
  Sex: Male

DRUGS (1)
  1. BOTULISM ANTITOXIN [Suspect]
     Active Substance: BOTULISM ANTITOXIN
     Indication: BOTULISM
     Route: 042
     Dates: start: 20140813, end: 20140813

REACTIONS (1)
  - Pyrexia [None]

NARRATIVE: CASE EVENT DATE: 2014
